FAERS Safety Report 12155546 (Version 3)
Quarter: 2016Q2

REPORT INFORMATION
  Report Type: Spontaneous
  Country: BY (occurrence: BY)
  Receive Date: 20160307
  Receipt Date: 20160418
  Transmission Date: 20160815
  Serious: Yes (Other)
  Sender: FDA-Public Use
  Company Number: BY-GE HEALTHCARE MEDICAL DIAGNOSTICS-VISP-PR-1603L-0098

PATIENT
  Age: 75 Year
  Sex: Male

DRUGS (8)
  1. VISIPAQUE [Suspect]
     Active Substance: IODIXANOL
     Indication: PRODUCT USED FOR UNKNOWN INDICATION
     Dosage: UNIT DOSE UNKNOWN
     Route: 065
     Dates: start: 20150403, end: 20150403
  2. 0.9% NACL [Concomitant]
     Active Substance: SODIUM CHLORIDE
     Indication: FLUID REPLACEMENT
     Route: 042
     Dates: start: 20150403
  3. CLOPIDOGREL [Concomitant]
     Active Substance: CLOPIDOGREL BISULFATE
     Route: 065
  4. ROSUVASTATIN. [Concomitant]
     Active Substance: ROSUVASTATIN
     Indication: PROPHYLAXIS
  5. LISINOPRIL. [Concomitant]
     Active Substance: LISINOPRIL
     Route: 065
  6. VISIPAQUE [Suspect]
     Active Substance: IODIXANOL
     Indication: THERAPEUTIC PROCEDURE
  7. ASPIRINE [Concomitant]
     Active Substance: ASPIRIN
     Route: 065
  8. CARVEDILOLUM [Concomitant]
     Route: 065

REACTIONS (1)
  - Nephropathy [Unknown]
